FAERS Safety Report 24628709 (Version 2)
Quarter: 2024Q4

REPORT INFORMATION
  Report Type: Report from Study
  Country: US (occurrence: US)
  Receive Date: 20241117
  Receipt Date: 20241120
  Transmission Date: 20250114
  Serious: Yes (Death)
  Sender: ROCHE
  Company Number: US-ROCHE-10000133163

PATIENT
  Age: 80 Year
  Sex: Male

DRUGS (10)
  1. ESBRIET [Suspect]
     Active Substance: PIRFENIDONE
     Indication: Idiopathic pulmonary fibrosis
     Dosage: TAKE 3 TABLET(S) BY MOUTH 3 TIMES A DAY WITH MEALS
     Route: 048
  2. ESBRIET [Suspect]
     Active Substance: PIRFENIDONE
     Indication: Pneumonia
     Route: 065
  3. ESBRIET [Suspect]
     Active Substance: PIRFENIDONE
     Indication: Interstitial lung disease
     Dosage: TAKE 1 TABLET (267 MG) BY MOUTH THREE TIMES DAILY WITH MEALS X 7 DAYS, THEN TAKE 2 TABLETS (534 MG)
     Route: 065
  4. ESBRIET [Suspect]
     Active Substance: PIRFENIDONE
     Dosage: THEN TAKE 3 TABLETS (801 MG), BY MOUTH THREE TIMES DAILY WITH MEALS
     Route: 065
  5. CLOPIDOGREL [Concomitant]
     Active Substance: CLOPIDOGREL BISULFATE
  6. IMDUR [Concomitant]
     Active Substance: ISOSORBIDE MONONITRATE
  7. LISINOPRIL [Concomitant]
     Active Substance: LISINOPRIL
  8. NITROSTAT [Concomitant]
     Active Substance: NITROGLYCERIN
  9. CRESTOR [Concomitant]
     Active Substance: ROSUVASTATIN CALCIUM
  10. MORNIFLUMATE [Concomitant]
     Active Substance: MORNIFLUMATE

REACTIONS (1)
  - Death [Fatal]
